FAERS Safety Report 14181254 (Version 2)
Quarter: 2018Q1

REPORT INFORMATION
  Report Type: Report from Study
  Country: US (occurrence: US)
  Receive Date: 20171112
  Receipt Date: 20180105
  Transmission Date: 20180508
  Serious: Yes (Hospitalization, Other)
  Sender: FDA-Public Use
  Company Number: PHHO2015US014632

PATIENT
  Age: 64 Year
  Sex: Male
  Weight: 79.9 kg

DRUGS (7)
  1. ZORTRESS [Suspect]
     Active Substance: EVEROLIMUS
     Dosage: 2 MG, BID
     Route: 048
     Dates: start: 20150915, end: 20150930
  2. ZORTRESS [Suspect]
     Active Substance: EVEROLIMUS
     Indication: LIVER TRANSPLANT
     Dosage: 2 MG, BID
     Route: 048
     Dates: start: 20150903
  3. MYCOPHENOLATE MOFETIL. [Suspect]
     Active Substance: MYCOPHENOLATE MOFETIL
     Indication: PRODUCT USED FOR UNKNOWN INDICATION
     Dosage: UNK
     Route: 065
  4. TACROLIMUS. [Suspect]
     Active Substance: TACROLIMUS
     Indication: LIVER TRANSPLANT
     Dosage: 4 MG, BID
     Route: 048
     Dates: start: 20150802
  5. TACROLIMUS. [Suspect]
     Active Substance: TACROLIMUS
     Dosage: 9 MG, 1 DF, (4 MG IN AM AND 5 MG IN PM)
     Route: 048
     Dates: start: 20150911
  6. ZORTRESS [Suspect]
     Active Substance: EVEROLIMUS
     Dosage: 2.5 MG, BID
     Route: 048
     Dates: start: 20150911
  7. TACROLIMUS. [Suspect]
     Active Substance: TACROLIMUS
     Dosage: 5 MG, BID
     Route: 048
     Dates: start: 20150915

REACTIONS (4)
  - Biliary anastomosis complication [Not Recovered/Not Resolved]
  - Clostridium difficile colitis [Recovered/Resolved]
  - Proteinuria [Not Recovered/Not Resolved]
  - Enterococcal bacteraemia [Recovered/Resolved]

NARRATIVE: CASE EVENT DATE: 20150921
